FAERS Safety Report 9539249 (Version 1)
Quarter: 2013Q2

REPORT INFORMATION
  Report Type: Spontaneous
  Country: US (occurrence: None)
  Receive Date: 20130521
  Receipt Date: 20130521
  Transmission Date: 20140414
  Serious: Yes (Other)
  Sender: FDA-Public Use
  Company Number: 1000043566

PATIENT
  Age: 81 Year
  Sex: Female

DRUGS (11)
  1. TUDORZA PRESSAIR [Suspect]
     Indication: CHRONIC OBSTRUCTIVE PULMONARY DISEASE
     Dosage: (400 MCG, 2 IN 1 D) RESPIRATORY
     Route: 055
     Dates: start: 20130228, end: 20130301
  2. COUMADIN [Concomitant]
  3. HUMALOG [Concomitant]
  4. COZAAR [Concomitant]
  5. VERAPAMIL [Concomitant]
  6. LASIX [Concomitant]
  7. LIPITOR [Concomitant]
  8. ALBUTEROL [Concomitant]
  9. LANTUS [Concomitant]
  10. DUONEB [Concomitant]
  11. ADVAIR [Concomitant]

REACTIONS (1)
  - Vision blurred [None]
